FAERS Safety Report 19733685 (Version 1)
Quarter: 2021Q3

REPORT INFORMATION
  Report Type: Other
  Country: CA (occurrence: CA)
  Receive Date: 20210823
  Receipt Date: 20210823
  Transmission Date: 20211014
  Serious: Yes (Other)
  Sender: FDA-Public Use
  Company Number: CA-PFIZER INC-202101022364

PATIENT

DRUGS (1)
  1. VORICONAZOLE. [Suspect]
     Active Substance: VORICONAZOLE
     Indication: PNEUMONIA FUNGAL
     Dosage: UNK

REACTIONS (4)
  - Hypoglycaemia [Unknown]
  - Brain injury [Unknown]
  - Toxic encephalopathy [Unknown]
  - Toxicity to various agents [Unknown]
